FAERS Safety Report 9995234 (Version 2)
Quarter: 2014Q1

REPORT INFORMATION
  Report Type: Spontaneous
  Country: US (occurrence: US)
  Receive Date: 20140311
  Receipt Date: 20140311
  Transmission Date: 20141002
  Serious: Yes (Hospitalization)
  Sender: FDA-Public Use
  Company Number: US-ELI_LILLY_AND_COMPANY-US201312003162

PATIENT
  Sex: Female
  Weight: 84.35 kg

DRUGS (2)
  1. HUMALOG LISPRO [Suspect]
     Indication: PRODUCT USED FOR UNKNOWN INDICATION
     Route: 058
  2. NOVOLOG [Concomitant]

REACTIONS (2)
  - Biliary dyskinesia [Unknown]
  - Cholecystitis chronic [Unknown]
